FAERS Safety Report 9010972 (Version 1)
Quarter: 2013Q1

REPORT INFORMATION
  Report Type: Spontaneous
  Country: US (occurrence: US)
  Receive Date: 20130109
  Receipt Date: 20130109
  Transmission Date: 20140127
  Serious: No
  Sender: FDA-Public Use
  Company Number: US-ASTRAZENECA-2012SE92524

PATIENT
  Age: 82 Year
  Sex: Female
  Weight: 59 kg

DRUGS (7)
  1. CRESTOR [Suspect]
     Route: 048
  2. VALIUM [Concomitant]
  3. TYLENOL PM [Concomitant]
  4. DIABETIC MEDICATION (AC ) [Concomitant]
     Indication: DIABETES MELLITUS
  5. PROZAC [Concomitant]
  6. LOSARTAN [Concomitant]
     Indication: HYPERTENSION
  7. JOINT JUICE [Concomitant]
     Indication: ARTHRALGIA

REACTIONS (3)
  - Dysstasia [Unknown]
  - Arthralgia [Unknown]
  - Off label use [Unknown]
